FAERS Safety Report 5121275-X (Version None)
Quarter: 2006Q4

REPORT INFORMATION
  Report Type: 
  Country: None (occurrence: None)
  Receive Date: 20061002
  Receipt Date: 20060921
  Transmission Date: 20070319
  Serious: Yes (Other)
  Sender: FDA-Public Use
  Company Number: 2006SP002478

PATIENT
  Age: 76 Year
  Sex: Male

DRUGS (2)
  1. TEMODAR [Suspect]
     Indication: GLIOBLASTOMA
     Dosage: 140 MG; QD; PO; SEE IMAGE
     Route: 048
     Dates: start: 20060909
  2. RADIATION THERAPY [Concomitant]

REACTIONS (7)
  - ABASIA [None]
  - CONFUSIONAL STATE [None]
  - DISORIENTATION [None]
  - FACIAL PALSY [None]
  - FALL [None]
  - MUSCLE RIGIDITY [None]
  - PYREXIA [None]
